FAERS Safety Report 11889929 (Version 1)
Quarter: 2016Q1

REPORT INFORMATION
  Report Type: Spontaneous
  Country: FR (occurrence: FR)
  Receive Date: 20160105
  Receipt Date: 20160105
  Transmission Date: 20160526
  Serious: Yes (Other)
  Sender: FDA-Public Use
  Company Number: FR-FRESENIUS KABI-FK201600018

PATIENT
  Age: 60 Year
  Sex: Female

DRUGS (13)
  1. CYTARABINE INJECTION [Suspect]
     Active Substance: CYTARABINE
     Route: 042
     Dates: start: 20151013
  2. SOLU-MEDROL [Concomitant]
     Active Substance: METHYLPREDNISOLONE SODIUM SUCCINATE
  3. FLUDARABINE TEVA [Suspect]
     Active Substance: FLUDARABINE PHOSPHATE
     Indication: ACUTE MYELOID LEUKAEMIA
     Route: 042
     Dates: start: 20150904
  4. AMIKACIN [Concomitant]
     Active Substance: AMIKACIN
  5. CYTARABINE INJECTION [Suspect]
     Active Substance: CYTARABINE
     Route: 042
     Dates: start: 20151015
  6. CYTARABINE INJECTION [Suspect]
     Active Substance: CYTARABINE
     Indication: ACUTE MYELOID LEUKAEMIA
     Route: 042
     Dates: start: 20150904
  7. FLUDARABINE TEVA [Suspect]
     Active Substance: FLUDARABINE PHOSPHATE
     Route: 042
     Dates: start: 20151013
  8. FLUDARABINE TEVA [Suspect]
     Active Substance: FLUDARABINE PHOSPHATE
     Route: 042
     Dates: start: 20151014, end: 20151015
  9. FLUDARABINE TEVA [Suspect]
     Active Substance: FLUDARABINE PHOSPHATE
     Route: 042
     Dates: start: 20151016
  10. CEFEPIME [Concomitant]
     Active Substance: CEFEPIME HYDROCHLORIDE
  11. ZYVOXID [Concomitant]
     Active Substance: LINEZOLID
  12. CYTARABINE INJECTION [Suspect]
     Active Substance: CYTARABINE
     Route: 042
     Dates: start: 20151016
  13. POLARAMINE [Concomitant]
     Active Substance: DEXCHLORPHENIRAMINE MALEATE

REACTIONS (2)
  - Hypotension [Recovered/Resolved]
  - Pyrexia [Recovered/Resolved]

NARRATIVE: CASE EVENT DATE: 20150905
